FAERS Safety Report 11253771 (Version 1)
Quarter: 2015Q3

REPORT INFORMATION
  Report Type: Spontaneous
  Country: AU (occurrence: AU)
  Receive Date: 20150709
  Receipt Date: 20150709
  Transmission Date: 20151125
  Serious: Yes (Death)
  Sender: FDA-Public Use
  Company Number: PHHY2015AU082168

PATIENT
  Age: 43 Year
  Sex: Male

DRUGS (1)
  1. RITALIN [Suspect]
     Active Substance: METHYLPHENIDATE HYDROCHLORIDE
     Indication: PRODUCT USED FOR UNKNOWN INDICATION
     Dosage: 18 DF, ONCE/SINGLE (CRUSHING, DISSOLVING IT IN WATER)
     Route: 042

REACTIONS (3)
  - Cardiac failure acute [Fatal]
  - Respiratory failure [Fatal]
  - Wrong technique in product usage process [Fatal]
